FAERS Safety Report 23669699 (Version 1)
Quarter: 2024Q1

REPORT INFORMATION
  Report Type: Spontaneous
  Country: ES (occurrence: ES)
  Receive Date: 20240325
  Receipt Date: 20240325
  Transmission Date: 20240410
  Serious: Yes (Life-Threatening, Hospitalization)
  Sender: FDA-Public Use
  Company Number: None

PATIENT
  Age: 80 Year
  Sex: Male
  Weight: 76.7 kg

DRUGS (4)
  1. VINCRISTINE SULFATE [Suspect]
     Active Substance: VINCRISTINE SULFATE
     Indication: Central nervous system lymphoma
     Dosage: 2 MG, 5 CYCLE
     Route: 042
     Dates: start: 20231201, end: 20240229
  2. RITUXIMAB [Suspect]
     Active Substance: RITUXIMAB
     Indication: Central nervous system lymphoma
     Dosage: 919 MG (500 MG/M2) 5 CYCLE
     Route: 042
     Dates: start: 20231201, end: 20240228
  3. METHOTREXATE SODIUM [Suspect]
     Active Substance: METHOTREXATE SODIUM
     Indication: Central nervous system lymphoma
     Dosage: 3676 MG (2000 MG/M2) TO BE ADMINISTERED IN 2 HOURS, 5 CYCLE
     Route: 042
     Dates: start: 20231201, end: 20240228
  4. PROCARBAZINE HYDROCHLORIDE [Suspect]
     Active Substance: PROCARBAZINE HYDROCHLORIDE
     Indication: Central nervous system lymphoma
     Dosage: 1400 MG, 5TH CYCLE
     Route: 048
     Dates: start: 20231201, end: 20240305

REACTIONS (1)
  - Agranulocytosis [Recovered/Resolved]

NARRATIVE: CASE EVENT DATE: 20240311
